FAERS Safety Report 18330004 (Version 2)
Quarter: 2020Q4

REPORT INFORMATION
  Report Type: Spontaneous
  Country: CN (occurrence: CN)
  Receive Date: 20200930
  Receipt Date: 20201009
  Transmission Date: 20210113
  Serious: Yes (Death, Hospitalization, Other)
  Sender: FDA-Public Use
  Company Number: NVSC2020CN264704

PATIENT
  Age: 56 Year
  Sex: Male

DRUGS (1)
  1. COSENTYX [Suspect]
     Active Substance: SECUKINUMAB
     Indication: PSORIASIS
     Dosage: 150 MG  (6 INJECTIONS TOTALLY)
     Route: 065

REACTIONS (6)
  - Cerebral infarction [Fatal]
  - Somnolence [Unknown]
  - Asthenia [Unknown]
  - Gastrointestinal disorder [Recovering/Resolving]
  - Pneumonia [Fatal]
  - Feeding disorder [Unknown]
